FAERS Safety Report 9473023 (Version 2)
Quarter: 2013Q3

REPORT INFORMATION
  Report Type: Spontaneous
  Country: US (occurrence: US)
  Receive Date: 20130823
  Receipt Date: 20130823
  Transmission Date: 20140515
  Serious: No
  Sender: FDA-Public Use
  Company Number: US-BRISTOL-MYERS SQUIBB COMPANY-17332941

PATIENT
  Age: 56 Year
  Sex: Female
  Weight: 75.28 kg

DRUGS (3)
  1. SPRYCEL [Suspect]
     Indication: CHRONIC MYELOMONOCYTIC LEUKAEMIA
     Dates: start: 20110214
  2. AZITHROMYCIN [Suspect]
     Dosage: DISCONTINUED, PRESCRIBED ON 16-AUG-2012
     Dates: start: 20120816
  3. LEVAQUIN [Suspect]

REACTIONS (1)
  - Swollen tongue [Unknown]
